FAERS Safety Report 26203274 (Version 1)
Quarter: 2025Q4

REPORT INFORMATION
  Report Type: Spontaneous
  Country: US (occurrence: US)
  Receive Date: 20251226
  Receipt Date: 20251226
  Transmission Date: 20260118
  Serious: Yes (Hospitalization)
  Sender: LUPIN
  Company Number: US-LUPIN PHARMACEUTICALS INC.-2025-11624

PATIENT
  Age: 47 Year
  Sex: Female

DRUGS (2)
  1. MORPHINE [Suspect]
     Active Substance: MORPHINE
     Indication: Pain
     Dosage: 30 MILLIGRAM, PRN (MORPHINE IMMEDIATE-RELEASE 30MG AS NEEDED)
     Route: 065
  2. MORPHINE [Suspect]
     Active Substance: MORPHINE
     Dosage: 60 MG, TID (THREE TIMES DAILY)
     Route: 065

REACTIONS (2)
  - Stress cardiomyopathy [Recovered/Resolved]
  - Drug withdrawal syndrome [Recovered/Resolved]
